FAERS Safety Report 9380140 (Version 1)
Quarter: 2013Q2

REPORT INFORMATION
  Report Type: Spontaneous
  Country: DK (occurrence: None)
  Receive Date: 20130628
  Receipt Date: 20130628
  Transmission Date: 20140414
  Serious: Yes (Other)
  Sender: FDA-Public Use
  Company Number: 1768675

PATIENT
  Age: 61 Year
  Sex: Male
  Weight: 101 kg

DRUGS (5)
  1. DEXMEDETOMIDINE HYDROCHLORIDE [Suspect]
     Indication: PSYCHOMOTOR HYPERACTIVITY
     Route: 042
     Dates: start: 20130531
  2. DEXMEDETOMIDINE HYDROCHLORIDE [Suspect]
     Route: 042
     Dates: start: 20130531
  3. DEXMEDETOMIDINE HYDROCHLORIDE [Suspect]
     Route: 042
     Dates: start: 20130531
  4. DELEPSINE [Concomitant]
  5. SERENASE /00027401/ [Concomitant]

REACTIONS (7)
  - Somnolence [None]
  - Depressed level of consciousness [None]
  - Unresponsive to stimuli [None]
  - Mobility decreased [None]
  - Mean arterial pressure decreased [None]
  - Urinary retention [None]
  - Electrocardiogram QT prolonged [None]
